FAERS Safety Report 5044567-1 (Version None)
Quarter: 2006Q3

REPORT INFORMATION
  Report Type: 
  Country: None (occurrence: None)
  Receive Date: 20060706
  Receipt Date: 20060627
  Transmission Date: 20061208
  Serious: Yes (Other)
  Sender: FDA-Public Use
  Company Number: CA-JNJFOC-20060606763

PATIENT
  Sex: Female

DRUGS (4)
  1. SPORANOX [Suspect]
     Indication: BLASTOMYCOSIS
     Route: 048
  2. MULTIVITAMIN [Concomitant]
  3. OMEGA-3 FATTY ACIDS [Concomitant]
  4. ASPIRIN [Concomitant]

REACTIONS (2)
  - HYPERTENSION [None]
  - RETINAL HAEMORRHAGE [None]
